FAERS Safety Report 19940821 (Version 1)
Quarter: 2021Q4

REPORT INFORMATION
  Report Type: Report from Study
  Country: CA (occurrence: CA)
  Receive Date: 20211012
  Receipt Date: 20211012
  Transmission Date: 20220303
  Serious: Yes (Other)
  Sender: FDA-Public Use
  Company Number: 2021A763190

PATIENT
  Age: 52 Year
  Sex: Male
  Weight: 140 kg

DRUGS (21)
  1. ROSUVASTATIN CALCIUM [Suspect]
     Active Substance: ROSUVASTATIN CALCIUM
     Indication: Product used for unknown indication
     Dosage: 5.0MG UNKNOWN
     Route: 048
  2. AMLODIPINE BESYLATE\CANDESARTAN CILEXETIL [Suspect]
     Active Substance: AMLODIPINE BESYLATE\CANDESARTAN CILEXETIL
     Indication: Secondary progressive multiple sclerosis
     Dosage: 10.0MG UNKNOWN
     Route: 048
  3. DOXEPIN HYDROCHLORIDE [Suspect]
     Active Substance: DOXEPIN HYDROCHLORIDE
     Indication: Product used for unknown indication
     Dosage: 6.0MG UNKNOWN
     Route: 065
  4. REBIF [Suspect]
     Active Substance: INTERFERON BETA-1A
     Indication: Product used for unknown indication
     Route: 058
  5. TAMSULOSIN [Suspect]
     Active Substance: TAMSULOSIN
     Indication: Secondary progressive multiple sclerosis
     Route: 065
  6. BISOPROLOL [Suspect]
     Active Substance: BISOPROLOL
     Indication: Secondary progressive multiple sclerosis
     Route: 048
  7. LORAZEPAM [Suspect]
     Active Substance: LORAZEPAM
     Indication: Product used for unknown indication
     Route: 048
  8. GABAPENTIN [Suspect]
     Active Substance: GABAPENTIN
     Indication: Product used for unknown indication
     Dosage: 10.0MG UNKNOWN
     Route: 065
  9. RABEPRAZOLE [Suspect]
     Active Substance: RABEPRAZOLE
     Indication: Secondary progressive multiple sclerosis
     Dosage: 20.0MG UNKNOWN
     Route: 048
  10. PRAMIPEXOLE DIHYDROCHLORIDE [Suspect]
     Active Substance: PRAMIPEXOLE DIHYDROCHLORIDE
     Indication: Secondary progressive multiple sclerosis
     Dosage: 0.25MG UNKNOWN
     Route: 048
  11. BACLOFEN [Suspect]
     Active Substance: BACLOFEN
     Indication: Product used for unknown indication
     Route: 065
  12. BACLOFEN [Suspect]
     Active Substance: BACLOFEN
     Indication: Product used for unknown indication
     Route: 048
  13. TECFIDERA [Suspect]
     Active Substance: DIMETHYL FUMARATE
     Indication: Product used for unknown indication
     Route: 065
  14. VITAMIN D3 [Concomitant]
     Active Substance: CHOLECALCIFEROL
     Route: 065
  15. ACETYLSALICYLIC ACID/CAFFEINE/CODEINE [Concomitant]
     Dosage: 80.0MG UNKNOWN
     Route: 065
  16. CALCIUM [Concomitant]
     Active Substance: CALCIUM
     Route: 065
  17. DALFAMPRIDINE [Concomitant]
     Active Substance: DALFAMPRIDINE
     Dosage: 10.0MG UNKNOWN
     Route: 065
  18. ATIVAN [Concomitant]
     Active Substance: LORAZEPAM
     Dosage: 0.5MG UNKNOWN
     Route: 065
  19. ASPIRIN [Concomitant]
     Active Substance: ASPIRIN
     Route: 065
  20. ALLOPURINOL [Concomitant]
     Active Substance: ALLOPURINOL
     Dosage: 100.0MG UNKNOWN
     Route: 048
  21. MINERALS\VITAMINS [Concomitant]
     Active Substance: MINERALS\VITAMINS
     Route: 065

REACTIONS (24)
  - Central nervous system lesion [Unknown]
  - Bradycardia [Unknown]
  - Movement disorder [Unknown]
  - Dizziness [Unknown]
  - Balance disorder [Unknown]
  - Micturition urgency [Unknown]
  - Pain [Unknown]
  - Erectile dysfunction [Unknown]
  - Anxiety [Unknown]
  - Hypertonic bladder [Unknown]
  - Memory impairment [Unknown]
  - Nocturia [Unknown]
  - Monoparesis [Unknown]
  - Pollakiuria [Unknown]
  - Multiple sclerosis relapse [Unknown]
  - Fall [Unknown]
  - Relapsing-remitting multiple sclerosis [Unknown]
  - Dysarthria [Unknown]
  - Ataxia [Unknown]
  - Hypoaesthesia [Unknown]
  - Gait spastic [Unknown]
  - Insomnia [Unknown]
  - Muscle spasticity [Unknown]
  - Needle fatigue [Unknown]

NARRATIVE: CASE EVENT DATE: 20200501
